FAERS Safety Report 5165070-4 (Version None)
Quarter: 2006Q4

REPORT INFORMATION
  Report Type: 
  Country: None (occurrence: None)
  Receive Date: 20061124
  Receipt Date: 20061114
  Transmission Date: 20070319
  Serious: Yes (Hospitalization, Other)
  Sender: FDA-Public Use
  Company Number: 2006045864

PATIENT
  Age: 49 Year
  Sex: Male
  Weight: 85 kg

DRUGS (11)
  1. SOMAVERT [Suspect]
     Indication: ACROMEGALY
     Dosage: SEE IMAGE, SUBCUTANEOUS
     Route: 058
     Dates: start: 20040212, end: 20040502
  2. SOMAVERT [Suspect]
     Indication: ACROMEGALY
     Dosage: SEE IMAGE, SUBCUTANEOUS
     Route: 058
     Dates: start: 20040503, end: 20040811
  3. SOMAVERT [Suspect]
     Indication: ACROMEGALY
     Dosage: SEE IMAGE, SUBCUTANEOUS
     Route: 058
     Dates: start: 20040812, end: 20041027
  4. SOMAVERT [Suspect]
     Indication: ACROMEGALY
     Dosage: SEE IMAGE, SUBCUTANEOUS
     Route: 058
     Dates: start: 20041201, end: 20060729
  5. HYDROCORTISONE [Concomitant]
  6. LEVOTHYROXINE SODIUM [Concomitant]
  7. SOMATULINE PR (LANREOTIDE) [Concomitant]
  8. BROMOCRIPTINE MESYLATE [Concomitant]
  9. DOSTINEX [Concomitant]
  10. SANDOSTATIN [Concomitant]
  11. TESTOSTERONE [Concomitant]

REACTIONS (3)
  - PITUITARY TUMOUR BENIGN [None]
  - PITUITARY TUMOUR RECURRENT [None]
  - SYNCOPE [None]
